FAERS Safety Report 15769678 (Version 1)
Quarter: 2018Q4

REPORT INFORMATION
  Report Type: Spontaneous
  Country: US (occurrence: US)
  Receive Date: 20181218
  Receipt Date: 20181218
  Transmission Date: 20190205
  Serious: No
  Sender: FDA-Public Use
  Company Number: None

PATIENT

DRUGS (4)
  1. SODIUM CHLORIDE 0.9% SOLUTION SODIUM CHLORIDE [Suspect]
     Active Substance: SODIUM CHLORIDE
     Route: 042
  2. SODIUM CHLORIDE 0.9% SOLUTION SODIUM CHLORIDE [Suspect]
     Active Substance: SODIUM CHLORIDE
     Dosage: ?          OTHER ROUTE:VIAFLO IV BAG?
  3. SODIUM CHLORIDE 0.9% SOLUTION SODIUM CHLORIDE [Suspect]
     Active Substance: SODIUM CHLORIDE
     Dosage: ?          OTHER ROUTE:VIAFLO IV BAG?
  4. SODIUM CHLORIDE 0.9% SOLUTION SODIUM CHLORIDE [Suspect]
     Active Substance: SODIUM CHLORIDE
     Route: 042

REACTIONS (3)
  - Product supply issue [None]
  - Product appearance confusion [None]
  - Product substitution issue [None]
